FAERS Safety Report 19075405 (Version 1)
Quarter: 2021Q1

REPORT INFORMATION
  Report Type: Other
  Country: US (occurrence: US)
  Receive Date: 20210331
  Receipt Date: 20210331
  Transmission Date: 20210420
  Serious: No
  Sender: FDA-Public Use
  Company Number: US-ROCHE-2797873

PATIENT
  Age: 18 Year
  Sex: Female
  Weight: 45.4 kg

DRUGS (2)
  1. OCREVUS [Suspect]
     Active Substance: OCRELIZUMAB
     Indication: RELAPSING-REMITTING MULTIPLE SCLEROSIS
     Dosage: DATE OF TREATMENT: 25?SEP?2020, 24?MAR?2020, 19?SEP?2019, 15?MAR?2019, 29?MAR?2019
     Route: 042
     Dates: start: 201903
  2. AVONEX [Concomitant]
     Active Substance: INTERFERON BETA-1A

REACTIONS (4)
  - Balance disorder [Unknown]
  - COVID-19 [Not Recovered/Not Resolved]
  - Walking aid user [Unknown]
  - Gait disturbance [Unknown]

NARRATIVE: CASE EVENT DATE: 202002
